FAERS Safety Report 5892521-X (Version None)
Quarter: 2008Q3

REPORT INFORMATION
  Report Type: 
  Country: None (occurrence: None)
  Receive Date: 20080923
  Receipt Date: 20080912
  Transmission Date: 20090109
  Serious: Yes (Death)
  Sender: FDA-Public Use
  Company Number: PRIUSA2000012652

PATIENT
  Age: 69 Year
  Sex: Male

DRUGS (9)
  1. REMICADE [Suspect]
     Route: 041
  2. REMICADE [Suspect]
     Indication: RHEUMATOID ARTHRITIS
     Route: 041
  3. PREDNISONE TAB [Suspect]
     Indication: DRUG USE FOR UNKNOWN INDICATION
  4. METHOTREXATE [Concomitant]
  5. SEGURIL [Concomitant]
     Dates: start: 20000608
  6. LEVOTHROID [Concomitant]
     Dates: start: 20000519
  7. COLCHICINE [Concomitant]
     Dates: start: 20000519
  8. OMEPRAZOLE [Concomitant]
     Dates: start: 20000101
  9. IDEOS [Concomitant]
     Dates: start: 19980201

REACTIONS (6)
  - AMYLOIDOSIS [None]
  - CARDIAC FAILURE CONGESTIVE [None]
  - MYOPATHY [None]
  - RENAL FAILURE ACUTE [None]
  - RESPIRATORY FAILURE [None]
  - RESPIRATORY TRACT INFECTION [None]
